FAERS Safety Report 4763716-3 (Version None)
Quarter: 2005Q3

REPORT INFORMATION
  Report Type: 
  Country: None (occurrence: None)
  Receive Date: 20050908
  Receipt Date: 20050902
  Transmission Date: 20060218
  Serious: Yes (Hospitalization)
  Sender: FDA-Public Use
  Company Number: IT-GLAXOSMITHKLINE-B0392732A

PATIENT
  Age: 75 Year
  Sex: Male

DRUGS (1)
  1. RANITIDINE [Suspect]
     Route: 048

REACTIONS (8)
  - BLOOD BILIRUBIN INCREASED [None]
  - CHROMATURIA [None]
  - EXCORIATION [None]
  - FAECES PALE [None]
  - HEPATOMEGALY [None]
  - JAUNDICE CHOLESTATIC [None]
  - OCULAR ICTERUS [None]
  - TRANSAMINASES INCREASED [None]
